FAERS Safety Report 10769252 (Version 1)
Quarter: 2015Q1

REPORT INFORMATION
  Report Type: Spontaneous
  Country: SE (occurrence: None)
  Receive Date: 20150204
  Receipt Date: 20150204
  Transmission Date: 20150721
  Serious: Yes (Congenital Anomaly)
  Sender: FDA-Public Use
  Company Number: BD-2015-0048

PATIENT

DRUGS (1)
  1. ONDANSETRON. [Suspect]
     Active Substance: ONDANSETRON
     Indication: FOETAL EXPOSURE DURING PREGNANCY

REACTIONS (3)
  - Urinary tract malformation [None]
  - Foot deformity [None]
  - Maternal drugs affecting foetus [None]
